FAERS Safety Report 9611025 (Version 1)
Quarter: 2013Q4

REPORT INFORMATION
  Report Type: Spontaneous
  Country: SK (occurrence: SK)
  Receive Date: 20131009
  Receipt Date: 20131009
  Transmission Date: 20140711
  Serious: Yes (Hospitalization)
  Sender: FDA-Public Use
  Company Number: SK-GLAXOSMITHKLINE-B0927403A

PATIENT
  Age: 61 Year
  Sex: Female

DRUGS (2)
  1. REVOLADE [Suspect]
     Indication: IMMUNE THROMBOCYTOPENIC PURPURA
     Dosage: 50MG PER DAY
     Route: 048
     Dates: start: 20110517, end: 20130924
  2. LEVOTHYROXINE [Concomitant]
     Dosage: 50MG PER DAY

REACTIONS (25)
  - Rash [Recovered/Resolved]
  - Gingival bleeding [Recovered/Resolved]
  - Metrorrhagia [Recovered/Resolved]
  - Feeling abnormal [Unknown]
  - Malaise [Unknown]
  - Asthenia [Unknown]
  - Chills [Unknown]
  - Weight increased [Unknown]
  - Somnolence [Unknown]
  - Abdominal pain upper [Unknown]
  - Dyspnoea [Unknown]
  - Local swelling [Recovered/Resolved]
  - Joint swelling [Recovered/Resolved]
  - Liver disorder [Unknown]
  - Cardiopulmonary failure [Unknown]
  - Hypertension [Unknown]
  - Alopecia [Unknown]
  - Dry mouth [Unknown]
  - Dry eye [Unknown]
  - Eyelid oedema [Unknown]
  - Sjogren^s syndrome [Unknown]
  - Angina unstable [Unknown]
  - Chest pain [Unknown]
  - Palpitations [Unknown]
  - Haemorrhoidal haemorrhage [Unknown]
